FAERS Safety Report 11221795 (Version 1)
Quarter: 2015Q2

REPORT INFORMATION
  Report Type: Spontaneous
  Country: JP (occurrence: JP)
  Receive Date: 20150626
  Receipt Date: 20150626
  Transmission Date: 20150821
  Serious: Yes (Death, Other)
  Sender: FDA-Public Use
  Company Number: JP-PFIZER INC-2015211863

PATIENT
  Age: 68 Year
  Sex: Male

DRUGS (2)
  1. XALKORI [Suspect]
     Active Substance: CRIZOTINIB
     Dosage: UNK
     Dates: start: 201504
  2. XALKORI [Suspect]
     Active Substance: CRIZOTINIB
     Indication: NON-SMALL CELL LUNG CANCER
     Dosage: UNK
     Route: 048
     Dates: end: 2014

REACTIONS (3)
  - Renal impairment [Not Recovered/Not Resolved]
  - Disease progression [Fatal]
  - Non-small cell lung cancer [Fatal]

NARRATIVE: CASE EVENT DATE: 20150420
